FAERS Safety Report 7811328-7 (Version None)
Quarter: 2011Q4

REPORT INFORMATION
  Report Type: 
  Country: None (occurrence: None)
  Receive Date: 20111013
  Receipt Date: 20111006
  Transmission Date: 20120403
  Serious: Yes (Death, Hospitalization)
  Sender: FDA-Public Use
  Company Number: CZ-SANOFI-AVENTIS-2011SA048097

PATIENT
  Age: 85 Year
  Sex: Female
  Weight: 74 kg

DRUGS (5)
  1. RAMIPRIL [Concomitant]
  2. WARFARIN SODIUM [Concomitant]
     Dosage: 25 MG WEEKLY
  3. DRONEDARONE HCL [Suspect]
     Indication: ATRIAL FIBRILLATION
     Route: 048
     Dates: start: 20110124, end: 20110128
  4. METOPROLOL TARTRATE [Concomitant]
  5. ATORVASTATIN [Concomitant]

REACTIONS (1)
  - CARDIAC FAILURE [None]
